FAERS Safety Report 7691659-4 (Version None)
Quarter: 2011Q3

REPORT INFORMATION
  Report Type: 
  Country: None (occurrence: None)
  Receive Date: 20110818
  Receipt Date: 20110811
  Transmission Date: 20111222
  Serious: Yes (Other)
  Sender: FDA-Public Use
  Company Number: FR-KINGPHARMUSA00001-K201100942

PATIENT
  Age: 82 Year
  Sex: Female

DRUGS (12)
  1. NIDREL [Suspect]
     Indication: HYPERTENSION
     Dosage: 1 DF, QD
     Route: 048
     Dates: end: 20110612
  2. ALTACE [Suspect]
     Dosage: 1 DF, QD
     Route: 048
     Dates: start: 20110714
  3. ALLOPURINOL [Concomitant]
  4. SOTALOL HCL [Suspect]
     Dosage: 0.5 DF, SINGLE
     Route: 048
     Dates: start: 20110612, end: 20110612
  5. POTASSIUM CHLORIDE [Concomitant]
  6. SERENOA REPENS [Concomitant]
  7. GINKGO BILOBA [Concomitant]
  8. ENALAPRIL MALEATE AND HYDROCHLOROTHIAZIDE [Suspect]
     Dosage: 1 DF, SINGLE
     Route: 048
     Dates: start: 20110612, end: 20110612
  9. PRAVASTATIN [Concomitant]
  10. EUPRESSYL [Suspect]
     Dosage: 30 MG, SINGLE
     Route: 048
     Dates: start: 20110612, end: 20110612
  11. ALTACE [Suspect]
     Indication: HYPERTENSION
     Dosage: 1 DF, QD
     Route: 048
     Dates: end: 20110612
  12. NIDREL [Suspect]
     Dosage: 1 DF, QD
     Dates: start: 20110614

REACTIONS (3)
  - DRUG INTERACTION [None]
  - ACCIDENTAL EXPOSURE [None]
  - HYPOTENSION [None]
